FAERS Safety Report 25860614 (Version 1)
Quarter: 2025Q3

REPORT INFORMATION
  Report Type: Spontaneous
  Country: US (occurrence: None)
  Receive Date: 20250929
  Receipt Date: 20250929
  Transmission Date: 20251021
  Serious: Yes (Hospitalization)
  Sender: FDA-CTU
  Company Number: None

PATIENT
  Age: 47 Year
  Sex: Female
  Weight: 78.75 kg

DRUGS (1)
  1. QUETIAPINE [Suspect]
     Active Substance: QUETIAPINE
     Indication: Mental disorder
     Dosage: FREQUENCY : TWICE A DAY;?
     Route: 048

REACTIONS (9)
  - Muscle twitching [None]
  - Restless legs syndrome [None]
  - Oropharyngeal pain [None]
  - Palpitations [None]
  - Somnolence [None]
  - Feeling abnormal [None]
  - Disorientation [None]
  - Dysarthria [None]
  - Bradykinesia [None]

NARRATIVE: CASE EVENT DATE: 20250924
